FAERS Safety Report 15894854 (Version 1)
Quarter: 2019Q1

REPORT INFORMATION
  Report Type: Spontaneous
  Country: US (occurrence: US)
  Receive Date: 20190131
  Receipt Date: 20190131
  Transmission Date: 20190417
  Serious: Yes (Other)
  Sender: FDA-Public Use
  Company Number: None

PATIENT
  Age: 53 Year
  Sex: Female
  Weight: 79.65 kg

DRUGS (23)
  1. GABAPENTIN. [Concomitant]
     Active Substance: GABAPENTIN
  2. MELOXICAM. [Concomitant]
     Active Substance: MELOXICAM
  3. CAPECITABINE. [Suspect]
     Active Substance: CAPECITABINE
     Indication: BREAST CANCER FEMALE
     Route: 048
     Dates: start: 20180103, end: 20190130
  4. FLUTICASONE. [Concomitant]
     Active Substance: FLUTICASONE
  5. IBRANCE [Concomitant]
     Active Substance: PALBOCICLIB
  6. LEVOCETIRIZINE [Concomitant]
     Active Substance: LEVOCETIRIZINE
  7. LOPERAMIDE [Concomitant]
     Active Substance: LOPERAMIDE
  8. MONTELUKAST [Concomitant]
     Active Substance: MONTELUKAST SODIUM
  9. PROCHLORPERAZINE. [Concomitant]
     Active Substance: PROCHLORPERAZINE
  10. COLACE [Concomitant]
     Active Substance: DOCUSATE SODIUM
  11. CYCLOBENZAPRINE HCL [Concomitant]
     Active Substance: CYCLOBENZAPRINE HYDROCHLORIDE
  12. FUROSEMIDE. [Concomitant]
     Active Substance: FUROSEMIDE
  13. KLOR-CON [Concomitant]
     Active Substance: POTASSIUM CHLORIDE
  14. OXYCODONE [Concomitant]
     Active Substance: OXYCODONE
  15. PANTOPRAZOLE [Concomitant]
     Active Substance: PANTOPRAZOLE
  16. ALBUTEROL. [Concomitant]
     Active Substance: ALBUTEROL
  17. LEVOTHYROXINE. [Concomitant]
     Active Substance: LEVOTHYROXINE
  18. ONDANSETRON [Concomitant]
     Active Substance: ONDANSETRON
  19. LETROZOLE. [Concomitant]
     Active Substance: LETROZOLE
  20. MELATONIN [Concomitant]
     Active Substance: MELATONIN
  21. CAPECITABINE. [Suspect]
     Active Substance: CAPECITABINE
     Indication: BREAST CANCER FEMALE
     Route: 048
     Dates: start: 20180103, end: 20190130
  22. FEXOFENADINE [Concomitant]
     Active Substance: FEXOFENADINE\FEXOFENADINE HYDROCHLORIDE
  23. HYDROCORTISONE. [Concomitant]
     Active Substance: HYDROCORTISONE

REACTIONS (1)
  - Disease progression [None]

NARRATIVE: CASE EVENT DATE: 20190131
